FAERS Safety Report 15952272 (Version 2)
Quarter: 2019Q3

REPORT INFORMATION
  Report Type: Spontaneous
  Country: US (occurrence: US)
  Receive Date: 20190211
  Receipt Date: 20190731
  Transmission Date: 20191004
  Serious: Yes (Other)
  Sender: FDA-Public Use
  Company Number: US-ASTRAZENECA-2019SE10311

PATIENT
  Age: 22937 Day
  Sex: Female

DRUGS (32)
  1. NEXIUM [Suspect]
     Active Substance: ESOMEPRAZOLE MAGNESIUM
     Dosage: GENERIC, 40MG UNKNOWN
     Route: 065
     Dates: start: 2017
  2. ADVAIR DISKUS [Concomitant]
     Active Substance: FLUTICASONE PROPIONATE\SALMETEROL XINAFOATE
     Dates: start: 20130416
  3. MELOXICAM. [Concomitant]
     Active Substance: MELOXICAM
     Dates: start: 20131018
  4. BACLOFEN. [Concomitant]
     Active Substance: BACLOFEN
  5. VENLAFAXINE [Concomitant]
     Active Substance: VENLAFAXINE HYDROCHLORIDE
  6. TRADJENTA [Concomitant]
     Active Substance: LINAGLIPTIN
  7. NEXIUM [Suspect]
     Active Substance: ESOMEPRAZOLE MAGNESIUM
     Dosage: 40.0MG UNKNOWN
     Route: 048
     Dates: start: 20150114
  8. POTASSIUM [Concomitant]
     Active Substance: POTASSIUM
  9. SOLOSTAR [Concomitant]
     Active Substance: DEVICE
  10. MAALOX ANTACID [Concomitant]
     Active Substance: ALUMINUM HYDROXIDE\DIMETHICONE\MAGNESIUM HYDROXIDE
  11. BACLOFEN. [Concomitant]
     Active Substance: BACLOFEN
     Dates: start: 20131119
  12. CRESTOR [Concomitant]
     Active Substance: ROSUVASTATIN CALCIUM
     Dates: start: 20140102
  13. METOPROLOL SUCCINATE. [Concomitant]
     Active Substance: METOPROLOL SUCCINATE
  14. ESCITALOPRAM OXALATE. [Concomitant]
     Active Substance: ESCITALOPRAM OXALATE
  15. CLOPIDOGREL [Concomitant]
     Active Substance: CLOPIDOGREL BISULFATE
  16. LANTUS [Concomitant]
     Active Substance: INSULIN GLARGINE
  17. NEXIUM [Suspect]
     Active Substance: ESOMEPRAZOLE MAGNESIUM
     Dosage: 40 MG UNKNOWN
     Route: 048
     Dates: end: 2016
  18. GABAPENTIN. [Concomitant]
     Active Substance: GABAPENTIN
  19. CITALOPRAM [Concomitant]
     Active Substance: CITALOPRAM HYDROBROMIDE
     Dates: start: 20131018
  20. METOPROLOL SUCCINATE. [Concomitant]
     Active Substance: METOPROLOL SUCCINATE
     Dates: start: 20140121
  21. FERROUS SULFATE. [Concomitant]
     Active Substance: FERROUS SULFATE
  22. CALCIUM [Concomitant]
     Active Substance: CALCIUM
  23. PROAIR HFA [Concomitant]
     Active Substance: ALBUTEROL SULFATE
     Dates: start: 20130607
  24. ROSUVASTATIN. [Concomitant]
     Active Substance: ROSUVASTATIN
  25. PANTOPRAZOLE [Suspect]
     Active Substance: PANTOPRAZOLE
     Dosage: 40 MG
     Route: 065
     Dates: start: 2015
  26. SPIRONOLACTONE. [Concomitant]
     Active Substance: SPIRONOLACTONE
     Dates: start: 20131219
  27. PROVENTIL [Concomitant]
     Active Substance: ALBUTEROL
  28. NEXIUM [Suspect]
     Active Substance: ESOMEPRAZOLE MAGNESIUM
     Route: 048
  29. VICTOZA [Concomitant]
     Active Substance: LIRAGLUTIDE
     Dates: start: 20131227
  30. AGGRENOX [Concomitant]
     Active Substance: ASPIRIN\DIPYRIDAMOLE
     Dates: start: 20140226
  31. BYDUREON [Concomitant]
     Active Substance: EXENATIDE
     Dates: start: 20150323
  32. LOSARTAN. [Concomitant]
     Active Substance: LOSARTAN

REACTIONS (4)
  - Hyperchlorhydria [Unknown]
  - Renal injury [Unknown]
  - Chronic kidney disease [Not Recovered/Not Resolved]
  - Renal failure [Unknown]

NARRATIVE: CASE EVENT DATE: 20161108
